FAERS Safety Report 4730350-0 (Version None)
Quarter: 2005Q3

REPORT INFORMATION
  Report Type: 
  Country: None (occurrence: None)
  Receive Date: 20050801
  Receipt Date: 20050309
  Transmission Date: 20060218
  Serious: Yes (Hospitalization, Disabling)
  Sender: FDA-Public Use
  Company Number: US-MERCK-0503USA02019

PATIENT
  Age: 75 Year
  Sex: Female
  Weight: 68 kg

DRUGS (6)
  1. VIOXX [Suspect]
     Indication: ARTHRITIS
     Route: 048
     Dates: start: 20020702, end: 20040917
  2. LOTENSIN [Concomitant]
     Indication: HYPERTENSION
     Route: 065
     Dates: start: 20000101
  3. ATENOLOL MSD [Concomitant]
     Indication: HYPERTENSION
     Route: 065
     Dates: start: 20020101
  4. VERAPAMIL MSD LP [Concomitant]
     Indication: CHEST PAIN
     Route: 065
     Dates: start: 20030301, end: 20040401
  5. HYTRIN [Concomitant]
     Route: 065
     Dates: start: 20030901
  6. HYTRIN [Concomitant]
     Route: 065
     Dates: start: 20030901

REACTIONS (3)
  - CHEST PAIN [None]
  - MYOCARDIAL INFARCTION [None]
  - PAIN [None]
